FAERS Safety Report 4635379-9 (Version None)
Quarter: 2005Q2

REPORT INFORMATION
  Report Type: 
  Country: None (occurrence: None)
  Receive Date: 20050411
  Receipt Date: 20050228
  Transmission Date: 20051028
  Serious: Yes (Hospitalization)
  Sender: FDA-Public Use
  Company Number: 2005000479

PATIENT
  Age: 75 Year
  Sex: Male

DRUGS (2)
  1. TARCEVA [Suspect]
     Indication: LUNG NEOPLASM MALIGNANT
     Dosage: SEE IMAGE
     Route: 048
     Dates: start: 20050214, end: 20050309
  2. TARCEVA [Suspect]
     Indication: LUNG NEOPLASM MALIGNANT
     Dosage: SEE IMAGE
     Route: 048
     Dates: start: 20050312, end: 20050314

REACTIONS (11)
  - ASTHENIA [None]
  - CONFUSIONAL STATE [None]
  - COORDINATION ABNORMAL [None]
  - COUGH [None]
  - DECREASED APPETITE [None]
  - DEHYDRATION [None]
  - FATIGUE [None]
  - GAIT DISTURBANCE [None]
  - NAUSEA [None]
  - PNEUMONIA [None]
  - RASH [None]
